FAERS Safety Report 20056464 (Version 1)
Quarter: 2021Q4

REPORT INFORMATION
  Report Type: Spontaneous
  Country: US (occurrence: US)
  Receive Date: 20211111
  Receipt Date: 20211111
  Transmission Date: 20220303
  Serious: No
  Sender: FDA-Public Use
  Company Number: US-JNJFOC-20211100765

PATIENT
  Age: 70 Year
  Sex: Female

DRUGS (1)
  1. ZYRTEC [Suspect]
     Active Substance: CETIRIZINE HYDROCHLORIDE
     Indication: Seasonal allergy
     Dosage: UNKNOWN DATE IN JUN 2021 OR JUL 2021, AS NEEDED FOR ALLERGIES
     Route: 065
     Dates: start: 2021

REACTIONS (2)
  - Somnolence [Unknown]
  - Accidental overdose [Unknown]

NARRATIVE: CASE EVENT DATE: 20211028
